FAERS Safety Report 15255585 (Version 1)
Quarter: 2018Q3

REPORT INFORMATION
  Report Type: Spontaneous
  Country: US (occurrence: US)
  Receive Date: 20180808
  Receipt Date: 20180808
  Transmission Date: 20181010
  Serious: Yes (Other)
  Sender: FDA-Public Use
  Company Number: US-TEVA-2018-US-938885

PATIENT
  Age: 38 Year
  Sex: Male

DRUGS (2)
  1. AZITHROMYCIN ANHYDROUS. [Concomitant]
     Active Substance: AZITHROMYCIN ANHYDROUS
     Indication: COUGH
     Route: 065
  2. PREDNISONE. [Suspect]
     Active Substance: PREDNISONE
     Indication: COUGH
     Route: 065

REACTIONS (2)
  - Chorioretinopathy [Recovered/Resolved]
  - Blindness [Recovered/Resolved]
